FAERS Safety Report 13923021 (Version 2)
Quarter: 2017Q3

REPORT INFORMATION
  Report Type: Spontaneous
  Country: BR (occurrence: BR)
  Receive Date: 20170830
  Receipt Date: 20170908
  Transmission Date: 20171127
  Serious: Yes (Other)
  Sender: FDA-Public Use
  Company Number: BR-AMGEN-BRASP2017091270

PATIENT
  Age: 54 Year
  Sex: Female

DRUGS (2)
  1. ENBREL [Suspect]
     Active Substance: ETANERCEPT
     Indication: ANKYLOSING SPONDYLITIS
     Dosage: 50 MG, ONCE WEEKLY
     Route: 065
     Dates: start: 201703, end: 20170731
  2. CYMBALTA [Concomitant]
     Active Substance: DULOXETINE HYDROCHLORIDE
     Dosage: 30 MG, UNK
     Dates: start: 2015

REACTIONS (16)
  - Illness anxiety disorder [Unknown]
  - Decreased immune responsiveness [Recovered/Resolved]
  - Pain in extremity [Unknown]
  - Decreased appetite [Recovered/Resolved]
  - Injection site erythema [Recovered/Resolved]
  - Upper respiratory tract inflammation [Recovered/Resolved]
  - Haematoma [Not Recovered/Not Resolved]
  - Injection site pain [Not Recovered/Not Resolved]
  - Nasopharyngitis [Unknown]
  - Asthenia [Recovered/Resolved]
  - Nausea [Unknown]
  - Chronic sinusitis [Recovered/Resolved]
  - Visual impairment [Not Recovered/Not Resolved]
  - Rhinorrhoea [Recovered/Resolved]
  - Tonsillitis [Recovered/Resolved]
  - Wrong technique in product usage process [Unknown]

NARRATIVE: CASE EVENT DATE: 201703
